FAERS Safety Report 11786288 (Version 4)
Quarter: 2016Q1

REPORT INFORMATION
  Report Type: Report from Study
  Country: US (occurrence: US)
  Receive Date: 20151130
  Receipt Date: 20160324
  Transmission Date: 20160525
  Serious: Yes (Life-Threatening, Hospitalization, Other)
  Sender: FDA-Public Use
  Company Number: US-JNJFOC-20151117533

PATIENT
  Age: 53 Year
  Sex: Male
  Weight: 75.3 kg

DRUGS (43)
  1. DARUNAVIR [Suspect]
     Active Substance: DARUNAVIR
     Indication: HIV INFECTION
     Route: 048
     Dates: start: 20140807, end: 20150709
  2. HYDROCODONE [Concomitant]
     Active Substance: HYDROCODONE
     Indication: CERVICAL RADICULOPATHY
     Route: 048
  3. HYDROCODONE [Concomitant]
     Active Substance: HYDROCODONE
     Indication: TENDON INJURY
     Route: 048
  4. HYDROCODONE [Concomitant]
     Active Substance: HYDROCODONE
     Indication: TENDON INJURY
     Route: 048
     Dates: start: 20120126
  5. HYDROCODONE [Concomitant]
     Active Substance: HYDROCODONE
     Indication: MUSCLE STRAIN
     Route: 048
  6. FUROSEMIDE. [Concomitant]
     Active Substance: FUROSEMIDE
     Indication: OEDEMA PERIPHERAL
     Route: 048
     Dates: start: 20150826
  7. COBICISTAT W/ELVITEGRAVIR/EMTRICITA [Suspect]
     Active Substance: COBICISTAT\ELVITEGRAVIR\EMTRICITABINE\TENOFOVIR
     Indication: HIV INFECTION
     Route: 048
     Dates: start: 20140807, end: 20150709
  8. HYDROCODONE [Concomitant]
     Active Substance: HYDROCODONE
     Indication: CERVICAL RADICULOPATHY
     Route: 048
     Dates: start: 20120126
  9. POTASSIUM CHLORIDE. [Concomitant]
     Active Substance: POTASSIUM CHLORIDE
     Indication: OEDEMA PERIPHERAL
     Route: 048
     Dates: start: 20150826
  10. FLAGYL [Concomitant]
     Active Substance: METRONIDAZOLE\METRONIDAZOLE HYDROCHLORIDE
     Indication: DIARRHOEA
     Route: 048
     Dates: start: 20150904, end: 20150918
  11. ENOXAPARIN [Concomitant]
     Active Substance: ENOXAPARIN
     Indication: SUBDURAL HAEMATOMA
     Route: 065
  12. FULYZAQ [Concomitant]
     Active Substance: CROFELEMER
     Indication: DIARRHOEA
     Route: 048
     Dates: start: 20150826, end: 20151003
  13. DARUNAVIR [Suspect]
     Active Substance: DARUNAVIR
     Indication: HIV INFECTION
     Route: 048
     Dates: start: 20150710
  14. WARFARIN [Concomitant]
     Active Substance: WARFARIN
     Indication: FACTOR V LEIDEN MUTATION
     Route: 048
  15. BETAMETHASONE. [Concomitant]
     Active Substance: BETAMETHASONE
     Indication: DERMATITIS CONTACT
     Route: 061
     Dates: start: 20150616, end: 20150826
  16. ENOXAPARIN [Concomitant]
     Active Substance: ENOXAPARIN
     Indication: DEEP VEIN THROMBOSIS
     Route: 058
     Dates: start: 20150927
  17. COBICISTAT W/ELVITEGRAVIR/EMTRICITA [Suspect]
     Active Substance: COBICISTAT\ELVITEGRAVIR\EMTRICITABINE\TENOFOVIR
     Indication: HIV INFECTION
     Route: 048
     Dates: start: 20150710
  18. WARFARIN [Concomitant]
     Active Substance: WARFARIN
     Indication: DEEP VEIN THROMBOSIS
     Route: 048
     Dates: start: 20120223, end: 20150927
  19. HYDROCODONE [Concomitant]
     Active Substance: HYDROCODONE
     Indication: MUSCLE STRAIN
     Route: 048
  20. HYDROCODONE [Concomitant]
     Active Substance: HYDROCODONE
     Indication: NECK PAIN
     Route: 048
  21. TRIAMCINOLONE ACETATE [Concomitant]
     Active Substance: TRIAMCINOLONE ACETONIDE
     Indication: RASH
     Route: 061
     Dates: start: 20150129, end: 20150826
  22. NICOTINE. [Concomitant]
     Active Substance: NICOTINE
     Indication: SMOKING CESSATION THERAPY
     Route: 050
     Dates: start: 20150415
  23. BETAMETHASONE. [Concomitant]
     Active Substance: BETAMETHASONE
     Indication: DERMATITIS CONTACT
     Route: 061
  24. HYDROCODONE [Concomitant]
     Active Substance: HYDROCODONE
     Indication: CERVICAL RADICULOPATHY
     Route: 048
  25. HYDROCODONE [Concomitant]
     Active Substance: HYDROCODONE
     Indication: TENDON INJURY
     Route: 048
  26. HYDROCODONE [Concomitant]
     Active Substance: HYDROCODONE
     Indication: MUSCLE STRAIN
     Route: 048
  27. HYDROCHLOROTHIAZIDE. [Concomitant]
     Active Substance: HYDROCHLOROTHIAZIDE
     Indication: OEDEMA PERIPHERAL
     Route: 048
     Dates: start: 20150826, end: 20150922
  28. ENOXAPARIN [Concomitant]
     Active Substance: ENOXAPARIN
     Indication: SUBDURAL HAEMATOMA
     Route: 065
  29. DIFLUCAN [Concomitant]
     Active Substance: FLUCONAZOLE
     Indication: CANDIDA INFECTION
     Route: 048
  30. WARFARIN [Concomitant]
     Active Substance: WARFARIN
     Indication: DEEP VEIN THROMBOSIS
     Route: 048
  31. HYDROCODONE [Concomitant]
     Active Substance: HYDROCODONE
     Indication: NECK PAIN
     Route: 048
  32. HYDROCODONE [Concomitant]
     Active Substance: HYDROCODONE
     Indication: NECK PAIN
     Route: 048
     Dates: start: 20120126
  33. HYDROCODONE [Concomitant]
     Active Substance: HYDROCODONE
     Indication: NECK PAIN
     Route: 048
  34. MEDROL [Concomitant]
     Active Substance: METHYLPREDNISOLONE
     Indication: URTICARIA
     Route: 048
     Dates: start: 20150814, end: 20150819
  35. EDOXABAN [Concomitant]
     Active Substance: EDOXABAN TOSYLATE
     Route: 065
     Dates: start: 2015
  36. WARFARIN [Concomitant]
     Active Substance: WARFARIN
     Indication: FACTOR V LEIDEN MUTATION
     Route: 048
     Dates: start: 20120223, end: 20150927
  37. CLONAZEPAM. [Concomitant]
     Active Substance: CLONAZEPAM
     Indication: ANXIETY
     Route: 048
     Dates: start: 20120126
  38. HYDROCODONE [Concomitant]
     Active Substance: HYDROCODONE
     Indication: CERVICAL RADICULOPATHY
     Route: 048
  39. HYDROCODONE [Concomitant]
     Active Substance: HYDROCODONE
     Indication: TENDON INJURY
     Route: 048
  40. HYDROCODONE [Concomitant]
     Active Substance: HYDROCODONE
     Indication: MUSCLE STRAIN
     Route: 048
     Dates: start: 20120126
  41. LISINOPRIL. [Concomitant]
     Active Substance: LISINOPRIL
     Indication: HYPERTENSION
     Route: 048
     Dates: start: 20140612, end: 20150826
  42. TESTOSTERONE CYPIONATE. [Concomitant]
     Active Substance: TESTOSTERONE CYPIONATE
     Indication: HYPOGONADISM
     Route: 030
     Dates: start: 20140716, end: 20150826
  43. DIFLUCAN [Concomitant]
     Active Substance: FLUCONAZOLE
     Indication: CANDIDA INFECTION
     Route: 048
     Dates: start: 20150922, end: 20150929

REACTIONS (1)
  - Subdural haematoma [Recovered/Resolved]

NARRATIVE: CASE EVENT DATE: 20150927
